FAERS Safety Report 4286678-4 (Version None)
Quarter: 2004Q1

REPORT INFORMATION
  Report Type: 
  Country: None (occurrence: None)
  Receive Date: 20040204
  Receipt Date: 20040126
  Transmission Date: 20041129
  Serious: Yes (Other)
  Sender: FDA-Public Use
  Company Number: HQWYE604328JAN04

PATIENT
  Sex: Female

DRUGS (4)
  1. PREMPRO [Suspect]
     Dosage: 0.625MG/UNSPECIFIED, ORAL
     Route: 048
     Dates: start: 19960523
  2. CYCRIN [Suspect]
     Dosage: UNSPECIFIED PRIOR TO 1996, ORAL
     Route: 048
  3. PREMARIN [Suspect]
     Dosage: UNSPECIFIED DOSAGE PRIOR TO 1996
  4. PROVERA [Suspect]
     Dosage: UNSPECIFIED DOSAGE PRIOR TO 1996, ORAL
     Route: 048

REACTIONS (1)
  - BREAST CANCER FEMALE [None]
